FAERS Safety Report 4598427-0 (Version None)
Quarter: 2005Q1

REPORT INFORMATION
  Report Type: 
  Country: None (occurrence: None)
  Receive Date: 20050302
  Receipt Date: 20050214
  Transmission Date: 20050727
  Serious: Yes (Other)
  Sender: FDA-Public Use
  Company Number: 2004BI001419

PATIENT
  Age: 44 Year
  Sex: Female
  Weight: 104.3273 kg

DRUGS (7)
  1. AVONEX [Suspect]
     Indication: MULTIPLE SCLEROSIS
     Dosage: IM
     Route: 030
  2. AVONEX [Suspect]
     Indication: MULTIPLE SCLEROSIS
     Dosage: 30 UG; QW; IM
     Route: 030
     Dates: start: 20040304, end: 20040304
  3. GLUCOPHAGE XR [Concomitant]
  4. AVANDIA [Concomitant]
  5. LAMISIL [Concomitant]
  6. ZOCOR [Concomitant]
  7. Z-COF [Concomitant]

REACTIONS (4)
  - CYSTITIS [None]
  - DIABETES MELLITUS [None]
  - GASTRITIS [None]
  - URINARY TRACT INFECTION [None]
